FAERS Safety Report 13522240 (Version 1)
Quarter: 2017Q2

REPORT INFORMATION
  Report Type: Spontaneous
  Country: CH (occurrence: CH)
  Receive Date: 20170508
  Receipt Date: 20170508
  Transmission Date: 20170830
  Serious: Yes (Hospitalization)
  Sender: FDA-Public Use
  Company Number: CH-TEVA-764250ISR

PATIENT
  Age: 75 Year
  Sex: Female
  Weight: 67.8 kg

DRUGS (8)
  1. LUKAIR [Concomitant]
     Active Substance: MONTELUKAST SODIUM
     Route: 048
  2. SINTROM [Concomitant]
     Active Substance: ACENOCOUMAROL
     Route: 048
  3. TEMESTA EXPIDET [Concomitant]
     Active Substance: LORAZEPAM
     Route: 048
  4. SOTALOL MEPHA 80 TABLETTEN [Suspect]
     Active Substance: SOTALOL HYDROCHLORIDE
     Dosage: 240 MILLIGRAM DAILY;
     Route: 048
     Dates: end: 201701
  5. ZANIDIP [Concomitant]
     Active Substance: LERCANIDIPINE HYDROCHLORIDE
     Route: 048
  6. ANTRAMUPS [Concomitant]
     Active Substance: OMEPRAZOLE
     Route: 048
  7. RELAXANE DRAGEES [Concomitant]
     Route: 048
  8. ULTIBRO BREEZHALER [Concomitant]
     Active Substance: GLYCOPYRRONIUM\INDACATEROL
     Route: 055

REACTIONS (4)
  - Dyspnoea [Recovered/Resolved]
  - Toxicity to various agents [None]
  - Infection reactivation [None]
  - Interstitial lung disease [Recovering/Resolving]

NARRATIVE: CASE EVENT DATE: 201701
